FAERS Safety Report 6883736-2 (Version None)
Quarter: 2010Q3

REPORT INFORMATION
  Report Type: 
  Country: None (occurrence: None)
  Receive Date: 20100729
  Receipt Date: 20100723
  Transmission Date: 20110219
  Serious: Yes (Hospitalization)
  Sender: FDA-Public Use
  Company Number: A0872761A

PATIENT
  Sex: Female
  Weight: 64 kg

DRUGS (6)
  1. SERETIDE [Suspect]
     Dosage: 2PUFF TWICE PER DAY
     Route: 055
     Dates: start: 20100401
  2. AVAMYS [Concomitant]
     Dosage: 2PUFF PER DAY
     Route: 045
     Dates: start: 20100326
  3. HYDROCHLOROTHIAZIDE [Concomitant]
     Dosage: 1TAB PER DAY
     Route: 048
     Dates: start: 20000101
  4. DUOVENT [Concomitant]
     Dosage: 3PUFF FOUR TIMES PER DAY
  5. DIOSMIN [Concomitant]
     Dosage: 1TAB TWICE PER DAY
     Route: 048
     Dates: start: 20050101
  6. ENALAPRIL [Concomitant]
     Dosage: 1TAB TWICE PER DAY
     Route: 048
     Dates: start: 20000101

REACTIONS (3)
  - ASTHMA [None]
  - DYSPNOEA [None]
  - OVERDOSE [None]
